FAERS Safety Report 5188474-2 (Version None)
Quarter: 2006Q4

REPORT INFORMATION
  Report Type: 
  Country: None (occurrence: None)
  Receive Date: 20061214
  Receipt Date: 20061205
  Transmission Date: 20070319
  Serious: Yes (Other)
  Sender: FDA-Public Use
  Company Number: 2006150389

PATIENT
  Age: 43 Year
  Sex: Male

DRUGS (1)
  1. NELFINAVIR MESILATE (NELFINAVIR MESILATE) [Suspect]
     Dosage: 3 TABLETS (TOTAL), ORAL
     Route: 048

REACTIONS (4)
  - DYSPHAGIA [None]
  - FOREIGN BODY TRAUMA [None]
  - OESOPHAGEAL OBSTRUCTION [None]
  - SUICIDE ATTEMPT [None]
